FAERS Safety Report 5463803-0 (Version None)
Quarter: 2007Q3

REPORT INFORMATION
  Report Type: 
  Country: None (occurrence: None)
  Receive Date: 20070919
  Receipt Date: 20070911
  Transmission Date: 20080115
  Serious: Yes (Hospitalization, Other)
  Sender: FDA-Public Use
  Company Number: 163-21880-07090512

PATIENT
  Age: 70 Year
  Sex: Male

DRUGS (2)
  1. REVLIMID [Suspect]
     Indication: METASTATIC RENAL CELL CARCINOMA
     Dosage: DAILY FOR 21 DAYS, ORAL
     Route: 048
     Dates: start: 20060810
  2. BETA BLOCKER                       (BETA BLOCKING AGENTS) [Concomitant]

REACTIONS (12)
  - ACTIVITIES OF DAILY LIVING IMPAIRED [None]
  - ANTI-THYROID ANTIBODY POSITIVE [None]
  - AUTOIMMUNE THYROIDITIS [None]
  - CONDITION AGGRAVATED [None]
  - DYSPHONIA [None]
  - DYSPNOEA [None]
  - FATIGUE [None]
  - GENERAL PHYSICAL HEALTH DETERIORATION [None]
  - HYPERTENSION [None]
  - HYPERTHYROIDISM [None]
  - PRURITUS [None]
  - RASH [None]
